FAERS Safety Report 5518267-5 (Version None)
Quarter: 2007Q4

REPORT INFORMATION
  Report Type: 
  Country: None (occurrence: None)
  Receive Date: 20071115
  Receipt Date: 20071112
  Transmission Date: 20080405
  Serious: Yes (Other)
  Sender: FDA-Public Use
  Company Number: B0494120A

PATIENT
  Age: 75 Year
  Sex: Female

DRUGS (1)
  1. REQUIP [Suspect]
     Indication: DRUG USE FOR UNKNOWN INDICATION
     Dosage: 1MG THREE TIMES PER DAY
     Route: 048
     Dates: start: 20071015, end: 20071103

REACTIONS (1)
  - SUDDEN ONSET OF SLEEP [None]
